FAERS Safety Report 5011349-6 (Version None)
Quarter: 2006Q2

REPORT INFORMATION
  Report Type: 
  Country: None (occurrence: None)
  Receive Date: 20060404
  Receipt Date: 20051214
  Transmission Date: 20061013
  Serious: No
  Sender: FDA-Public Use
  Company Number: USA0508105728

PATIENT
  Age: 56 Year
  Sex: Female
  Weight: 92.1 kg

DRUGS (4)
  1. CYMBALTA [Suspect]
     Indication: INSOMNIA
     Dosage: 60 MG, DAILY (1/D), ORAL
     Route: 048
     Dates: start: 20050601
  2. NORVASC [Concomitant]
  3. HYDROCHLOROTHIAZIDE [Concomitant]
  4. DIOVAN [Concomitant]

REACTIONS (2)
  - HALLUCINATION, AUDITORY [None]
  - INSOMNIA [None]
